FAERS Safety Report 7561225-X (Version None)
Quarter: 2011Q2

REPORT INFORMATION
  Report Type: 
  Country: None (occurrence: None)
  Receive Date: 20110621
  Receipt Date: 20110303
  Transmission Date: 20111010
  Serious: No
  Sender: FDA-Public Use
  Company Number: US-ASTRAZENECA-2011SE12028

PATIENT
  Age: 29597 Day
  Sex: Female
  Weight: 64.9 kg

DRUGS (12)
  1. TEGRETOL [Concomitant]
  2. ZUMERA [Concomitant]
  3. DIOVAN [Concomitant]
  4. AMLODIPINE [Concomitant]
  5. CARBAMAZEPINE [Concomitant]
  6. SIMVASTATIN [Concomitant]
  7. PULMICORT FLEXHALER [Suspect]
     Dosage: DAILY
     Route: 055
     Dates: start: 20101101
  8. METHOTREXATE [Concomitant]
  9. FOLIC ACID [Concomitant]
  10. HYDROCHLOROTHIAZIDE [Concomitant]
  11. PREDNISONE [Concomitant]
  12. SINGULAIR [Concomitant]

REACTIONS (1)
  - LARYNGEAL RHEUMATOID ARTHRITIS [None]
